FAERS Safety Report 9917616 (Version 1)
Quarter: 2014Q1

REPORT INFORMATION
  Report Type: Spontaneous
  Country: DE (occurrence: DE)
  Receive Date: 20140221
  Receipt Date: 20140221
  Transmission Date: 20141002
  Serious: Yes (Hospitalization)
  Sender: FDA-Public Use
  Company Number: PHHY2014DE017433

PATIENT
  Age: 70 Year
  Sex: 0

DRUGS (4)
  1. METOPROLOL [Suspect]
     Indication: VENTRICULAR TACHYCARDIA
     Dosage: 5 MG, UNK
     Route: 042
  2. AMIODARONE [Suspect]
     Indication: VENTRICULAR TACHYCARDIA
     Dosage: 60 MG/H, UNK
  3. XYLOCAINE [Suspect]
     Indication: VENTRICULAR TACHYCARDIA
     Dosage: 70 MG/H, UNK
  4. NOREPINEPHRINE [Concomitant]
     Dosage: 0.03 UG/KG/MIN

REACTIONS (3)
  - Atrial fibrillation [Unknown]
  - Ventricular tachycardia [Unknown]
  - Drug ineffective [Unknown]
